FAERS Safety Report 9846826 (Version 2)
Quarter: 2014Q1

REPORT INFORMATION
  Report Type: Spontaneous
  Country: CA (occurrence: CA)
  Receive Date: 20140127
  Receipt Date: 20140127
  Transmission Date: 20141002
  Serious: Yes (Disabling, Other)
  Sender: FDA-Public Use
  Company Number: CA-009507513-2012SP024246

PATIENT
  Age: 57 Year
  Sex: Male

DRUGS (9)
  1. VICTRELIS [Suspect]
     Indication: HEPATITIS C
     Dosage: UNK
     Route: 065
     Dates: start: 20120301
  2. VICTRELIS [Suspect]
     Dosage: UNK
     Route: 048
     Dates: start: 20130301, end: 20130508
  3. PEG-INTRON [Suspect]
     Indication: HEPATITIS C
     Dosage: 0.5 ML, UNK
     Route: 058
     Dates: start: 20120301
  4. PEG-INTRON [Suspect]
     Dosage: 0.45 ML, UNK
     Route: 058
  5. PEG-INTRON [Suspect]
     Dosage: 0.5 ML, UNK
     Route: 058
  6. PEG-INTRON [Suspect]
     Dosage: 0.4 ML, UNK
     Route: 058
  7. PEG-INTRON [Suspect]
     Dosage: 0.35 ML, UNK
     Route: 058
     Dates: end: 20120426
  8. MK-8908 [Suspect]
     Indication: HEPATITIS C
     Dosage: 2400 MG, UNK
     Route: 048
     Dates: start: 20120301
  9. PEGETRON [Suspect]
     Indication: HEPATITIS C
     Dosage: UNK
     Route: 058
     Dates: start: 20130301, end: 20130508

REACTIONS (23)
  - Amyotrophic lateral sclerosis [Recovering/Resolving]
  - Abdominal distension [Unknown]
  - Blood albumin decreased [Unknown]
  - Iris disorder [Unknown]
  - Tremor [Unknown]
  - Loss of consciousness [Unknown]
  - Abdominal pain [Unknown]
  - Haemoglobin decreased [Unknown]
  - Visual impairment [Unknown]
  - Dyspnoea [Unknown]
  - Asthenia [Unknown]
  - Hallucination [Recovering/Resolving]
  - Liver disorder [Recovering/Resolving]
  - Hepatic necrosis [Unknown]
  - Hepatic cirrhosis [Unknown]
  - Splenomegaly [Unknown]
  - Nausea [Unknown]
  - Yellow skin [Unknown]
  - Vomiting [Unknown]
  - Faeces pale [Unknown]
  - Fatigue [Unknown]
  - Pruritus [Unknown]
  - Caregiver [Unknown]
